FAERS Safety Report 17782417 (Version 1)
Quarter: 2020Q2

REPORT INFORMATION
  Report Type: Spontaneous
  Country: PL (occurrence: PL)
  Receive Date: 20200514
  Receipt Date: 20200514
  Transmission Date: 20200714
  Serious: Yes (Other)
  Sender: FDA-Public Use
  Company Number: PL-ACCORD-181701

PATIENT
  Age: 39 Year
  Sex: Female
  Weight: 89 kg

DRUGS (2)
  1. DOCETAXEL ACCORD [Suspect]
     Active Substance: DOCETAXEL
     Indication: UTERINE CANCER
     Dosage: DOSE: 150 80 MG VIAL
     Route: 042
     Dates: start: 20191029
  2. GEMCITABINE. [Suspect]
     Active Substance: GEMCITABINE
     Indication: UTERINE CANCER
     Dosage: 1000 MG VIAL
     Route: 042
     Dates: start: 20191029

REACTIONS (3)
  - Neutropenia [Recovering/Resolving]
  - Liver injury [Recovering/Resolving]
  - Asthenia [Recovering/Resolving]

NARRATIVE: CASE EVENT DATE: 20191230
